FAERS Safety Report 6381783-0 (Version None)
Quarter: 2009Q3

REPORT INFORMATION
  Report Type: 
  Country: None (occurrence: None)
  Receive Date: 20090930
  Receipt Date: 20070604
  Transmission Date: 20100115
  Serious: Yes (Other)
  Sender: FDA-Public Use
  Company Number: US-ASTRAZENECA-2006UW22465

PATIENT
  Age: 15866 Day
  Sex: Female
  Weight: 113.4 kg

DRUGS (9)
  1. SEROQUEL [Suspect]
     Indication: BIPOLAR DISORDER
     Route: 048
     Dates: start: 19980804
  2. SEROQUEL [Suspect]
     Indication: SLEEP DISORDER
     Route: 048
     Dates: start: 19980804
  3. SEROQUEL [Suspect]
     Dosage: 75 MG - 600 MG
     Route: 048
     Dates: start: 19990209
  4. SEROQUEL [Suspect]
     Dosage: 75 MG - 600 MG
     Route: 048
     Dates: start: 19990209
  5. HALDOL [Concomitant]
     Dates: start: 20020221
  6. LITHIUM CARBONATE [Concomitant]
     Dosage: 600 MG - 1200 MG
     Route: 048
     Dates: start: 19990209
  7. NEURONTIN [Concomitant]
     Dates: start: 20051031
  8. CAPTOPRIL [Concomitant]
     Dates: start: 20031115
  9. LEVOTHROID [Concomitant]
     Dates: start: 20031115

REACTIONS (5)
  - DIABETES MELLITUS [None]
  - DIABETES MELLITUS INADEQUATE CONTROL [None]
  - DIABETIC NEUROPATHY [None]
  - NEUROPATHY PERIPHERAL [None]
  - TYPE 2 DIABETES MELLITUS [None]
